FAERS Safety Report 11521044 (Version 3)
Quarter: 2015Q4

REPORT INFORMATION
  Report Type: Spontaneous
  Country: US (occurrence: US)
  Receive Date: 20150918
  Receipt Date: 20151020
  Transmission Date: 20160304
  Serious: Yes (Other)
  Sender: FDA-Public Use
  Company Number: US-BAYER-2015-420215

PATIENT
  Sex: Female

DRUGS (2)
  1. MIRENA [Suspect]
     Active Substance: LEVONORGESTREL
     Indication: CONTRACEPTION
     Dosage: 20 MCG/24HR, CONT
     Route: 015
     Dates: start: 201503, end: 2015
  2. SERTRALINE [Concomitant]
     Active Substance: SERTRALINE HYDROCHLORIDE

REACTIONS (21)
  - General physical health deterioration [None]
  - Cough [Not Recovered/Not Resolved]
  - Arthralgia [None]
  - Weight decreased [None]
  - Irritability [None]
  - Alopecia [None]
  - Blood creatinine increased [None]
  - Aphonia [None]
  - Urine odour abnormal [None]
  - Depression [None]
  - Peripheral swelling [None]
  - Dark circles under eyes [None]
  - Dysphonia [None]
  - Chromaturia [None]
  - Anger [None]
  - Memory impairment [None]
  - Asthenia [None]
  - Intentional medical device removal by patient [None]
  - Chemical poisoning [None]
  - Haemoptysis [None]
  - Fatigue [None]

NARRATIVE: CASE EVENT DATE: 2015
